FAERS Safety Report 7984381-8 (Version None)
Quarter: 2011Q4

REPORT INFORMATION
  Report Type: 
  Country: None (occurrence: None)
  Receive Date: 20111214
  Receipt Date: 20111202
  Transmission Date: 20120403
  Serious: Yes (Other)
  Sender: FDA-Public Use
  Company Number: TPA2011A08182

PATIENT
  Age: 62 Year
  Sex: Female
  Weight: 109.7705 kg

DRUGS (10)
  1. VITAMINS (VITAMINS /90003601/) [Concomitant]
  2. ACTOS [Suspect]
     Indication: TYPE 2 DIABETES MELLITUS
     Dosage: 30 MG, 1 IN 1 D, PER ORAL ; 30 MG, 1 IN 1 D, PER ORAL
     Route: 048
     Dates: start: 20111001
  3. ACTOS [Suspect]
     Indication: TYPE 2 DIABETES MELLITUS
     Dosage: 30 MG, 1 IN 1 D, PER ORAL ; 30 MG, 1 IN 1 D, PER ORAL
     Route: 048
     Dates: end: 20041202
  4. ACTOS [Suspect]
     Indication: TYPE 2 DIABETES MELLITUS
     Dosage: 30 MG, 1 IN 1 D, PER ORAL ; 30 MG, 1 IN 1 D, PER ORAL
     Route: 048
     Dates: start: 20041202, end: 20111001
  5. LANTUS [Concomitant]
  6. IRON TABLETS (IRON) [Concomitant]
  7. GLYBURIDE [Concomitant]
  8. HYDROCHLOROTHIAZIDE [Concomitant]
  9. METFORMIN HYDROCHLORIDE [Concomitant]
  10. ALBUTEROL NEBULIZER (SALBUTAMOL) [Concomitant]

REACTIONS (4)
  - COLON CANCER RECURRENT [None]
  - RED BLOOD CELL COUNT DECREASED [None]
  - WEIGHT INCREASED [None]
  - NERVOUSNESS [None]
